APPROVED DRUG PRODUCT: XTAMPZA ER
Active Ingredient: OXYCODONE
Strength: 18MG
Dosage Form/Route: CAPSULE, EXTENDED RELEASE;ORAL
Application: N208090 | Product #003
Applicant: COLLEGIUM PHARMACEUTICAL INC
Approved: Apr 26, 2016 | RLD: Yes | RS: No | Type: RX

PATENTS:
Patent 9682075 | Expires: Dec 10, 2030
Patent 10004729 | Expires: Dec 10, 2030
Patent 10188644 | Expires: Sep 2, 2036
Patent 9737530 | Expires: Sep 2, 2036
Patent 9968598 | Expires: Sep 2, 2036
Patent 10646485 | Expires: Sep 2, 2036
Patent 10668060 | Expires: Dec 10, 2030
Patent 7771707 | Expires: Oct 9, 2028